FAERS Safety Report 9734093 (Version 1)
Quarter: 2013Q4

REPORT INFORMATION
  Report Type: Spontaneous
  Country: DE (occurrence: DE)
  Receive Date: 20131205
  Receipt Date: 20131205
  Transmission Date: 20140711
  Serious: Yes (Other)
  Sender: FDA-Public Use
  Company Number: DE-TEVA-448558GER

PATIENT
  Age: 36 Year
  Sex: Female
  Weight: 70 kg

DRUGS (6)
  1. AKRINOR [Suspect]
     Indication: LAPAROSCOPY
     Route: 042
     Dates: start: 20080829, end: 20080829
  2. PROPOFOL [Suspect]
     Indication: LAPAROSCOPY
     Dosage: SUSPICION OF ECTOPIC PREGNANDY; CYSTIS
     Route: 042
     Dates: start: 20080829, end: 20080829
  3. FENTANYL [Suspect]
     Indication: LAPAROSCOPY
     Dosage: SUSPICION OF ECTOPIC PREGNANDY; CYSTIS
     Route: 042
     Dates: start: 20080829, end: 20080829
  4. ROCURONIUM [Suspect]
     Indication: LAPAROSCOPY
     Dosage: SUSPICION OF ECTOPIC PREGNANDY; CYSTIS
     Route: 042
     Dates: start: 20080829, end: 20080829
  5. METAMIZOLE [Suspect]
     Indication: LAPAROSCOPY
     Route: 042
     Dates: start: 20080829, end: 20080829
  6. SALBUTAMOL [Concomitant]
     Indication: ASTHMA
     Route: 055
     Dates: start: 20080721, end: 20081020

REACTIONS (1)
  - Selective abortion [Unknown]
